FAERS Safety Report 20757710 (Version 1)
Quarter: 2022Q2

REPORT INFORMATION
  Report Type: Spontaneous
  Country: FR (occurrence: FR)
  Receive Date: 20220427
  Receipt Date: 20220427
  Transmission Date: 20220721
  Serious: Yes (Death, Life-Threatening, Other)
  Sender: FDA-Public Use
  Company Number: FR-ANIPHARMA-2022-FR-000071

PATIENT
  Age: 85 Year
  Sex: Female

DRUGS (14)
  1. CANDESARTAN CILEXETIL [Suspect]
     Active Substance: CANDESARTAN CILEXETIL
     Indication: Hypertension
     Dosage: 16 MG DAILY
     Route: 048
     Dates: end: 20220326
  2. LEVOTHYROXINE [Concomitant]
     Active Substance: LEVOTHYROXINE
     Dosage: 100 UG DAILY
     Route: 065
  3. FERROUS FUMARATE [Concomitant]
     Active Substance: FERROUS FUMARATE
     Route: 065
  4. ALLOPURINOL [Concomitant]
     Active Substance: ALLOPURINOL
     Dosage: 100 MG DAILY
     Route: 065
  5. ISOSORBIDE [Concomitant]
     Active Substance: ISOSORBIDE
     Dosage: 4 MG DAILY
     Route: 065
  6. LOXEN [Concomitant]
     Dosage: 5MG/H + BOLUS OF 2MG LOXEN
     Route: 065
  7. ALTEPLASE [Suspect]
     Active Substance: ALTEPLASE
     Dates: start: 20220326, end: 20220326
  8. LERCANIDIPINE [Concomitant]
     Active Substance: LERCANIDIPINE
     Dosage: 20 MG DAILY
     Route: 048
  9. RILMENIDINE PHOSPHATE [Concomitant]
     Active Substance: RILMENIDINE PHOSPHATE
     Dosage: 2 MG DAILY
     Route: 048
  10. FUROSEMIDE [Concomitant]
     Active Substance: FUROSEMIDE
     Dosage: 165 MG DAILY /  50 MG UNK
     Route: 048
  11. BISOPROLOL IF [Concomitant]
     Dosage: 20 MG DAILY
     Route: 048
  12. OMEPRAZOLE [Concomitant]
     Active Substance: OMEPRAZOLE
     Dosage: 20 MG DAILY
     Route: 048
  13. FOLIC ACID [Concomitant]
     Active Substance: FOLIC ACID
     Route: 065
  14. CHOLECALCIFEROL [Concomitant]
     Active Substance: CHOLECALCIFEROL
     Route: 065

REACTIONS (6)
  - Angioedema [Recovered/Resolved]
  - Drug interaction [Recovered/Resolved]
  - Ischaemic stroke [Fatal]
  - Cardiac failure [Unknown]
  - Acute respiratory failure [Unknown]
  - Acute kidney injury [Unknown]

NARRATIVE: CASE EVENT DATE: 20220326
